FAERS Safety Report 8471480-X (Version None)
Quarter: 2012Q2

REPORT INFORMATION
  Report Type: 
  Country: None (occurrence: None)
  Receive Date: 20120627
  Receipt Date: 20120625
  Transmission Date: 20120825
  Serious: Yes (Death)
  Sender: FDA-Public Use
  Company Number: MX-PFIZER INC-2012153424

PATIENT
  Age: 85 Year
  Sex: Female
  Weight: 50 kg

DRUGS (2)
  1. ASPIRIN [Concomitant]
     Dosage: ONCE PER DAY
     Route: 048
  2. ALDACTONE [Suspect]
     Indication: CARDIAC FAILURE CONGESTIVE
     Dosage: UNK
     Route: 048

REACTIONS (1)
  - DEATH [None]
